FAERS Safety Report 5127399-5 (Version None)
Quarter: 2006Q4

REPORT INFORMATION
  Report Type: 
  Country: None (occurrence: None)
  Receive Date: 20061013
  Receipt Date: 20061013
  Transmission Date: 20070319
  Serious: Yes (Other)
  Sender: FDA-Public Use
  Company Number: None

PATIENT
  Age: 40 Year
  Sex: Male

DRUGS (9)
  1. ROSUVASTATIN; CRESTOR; ASTRAZENECA; ANTILIPEMIC [Suspect]
     Indication: HYPERLIPIDAEMIA
     Dosage: ORAL 10.0 MILLIGRAM
     Route: 048
     Dates: start: 20050401, end: 20060430
  2. B12 [Concomitant]
  3. CETIRIZINE HCL [Concomitant]
  4. COLACE [Concomitant]
  5. METAMUCIL [Concomitant]
  6. PYRIDOXINE HCL [Concomitant]
  7. RABEPRAZOLE SODIUM [Concomitant]
  8. LISINOPRIL [Concomitant]
  9. IBUPROFEN [Concomitant]

REACTIONS (1)
  - MYALGIA [None]
